FAERS Safety Report 15221006 (Version 1)
Quarter: 2018Q3

REPORT INFORMATION
  Report Type: Spontaneous
  Country: BR (occurrence: BR)
  Receive Date: 20180731
  Receipt Date: 20180731
  Transmission Date: 20181010
  Serious: Yes (Hospitalization, Other)
  Sender: FDA-Public Use
  Company Number: BR-GLAXOSMITHKLINE-BR2018GSK130415

PATIENT
  Sex: Female
  Weight: 12.5 kg

DRUGS (2)
  1. FLIXOTIDE (CFC?FREE) [Suspect]
     Active Substance: FLUTICASONE PROPIONATE
     Indication: LUNG DISORDER
     Dosage: UNK UNK, BID
     Route: 055
     Dates: start: 20170101
  2. SERETIDE [Suspect]
     Active Substance: FLUTICASONE PROPIONATE\SALMETEROL XINAFOATE
     Indication: LUNG DISORDER
     Dosage: 1 PUFF(S), BID, 25MCG/125MCG
     Route: 055

REACTIONS (3)
  - Product use issue [Unknown]
  - Leukaemia [Recovered/Resolved]
  - Product prescribing issue [Recovered/Resolved]
